FAERS Safety Report 4887223-2 (Version None)
Quarter: 2005Q4

REPORT INFORMATION
  Report Type: 
  Country: None (occurrence: None)
  Receive Date: 20051220
  Receipt Date: 20050328
  Transmission Date: 20060501
  Serious: Yes (Other)
  Sender: FDA-Public Use
  Company Number: HQWYE788797APR05

PATIENT
  Age: 21 Year
  Sex: Female
  Weight: 59.02 kg

DRUGS (3)
  1. EFFEXOR XR [Suspect]
     Indication: DEPRESSION
     Dosage: 300 MG 1X PER 1 DAY, ORAL ; 450 MG 1X PER 1 DAY,ORAL
     Route: 048
     Dates: end: 20040401
  2. EFFEXOR XR [Suspect]
     Indication: DEPRESSION
     Dosage: 300 MG 1X PER 1 DAY, ORAL ; 450 MG 1X PER 1 DAY,ORAL
     Route: 048
     Dates: start: 20040401
  3. LITHIUM CARBONATE [Concomitant]

REACTIONS (1)
  - URINARY TRACT INFECTION [None]
